FAERS Safety Report 8248682-0 (Version None)
Quarter: 2012Q1

REPORT INFORMATION
  Report Type: 
  Country: None (occurrence: None)
  Receive Date: 20120331
  Receipt Date: 20120322
  Transmission Date: 20120608
  Serious: Yes (Hospitalization, Other)
  Sender: FDA-Public Use
  Company Number: PHHY2011AU53916

PATIENT
  Sex: Female

DRUGS (3)
  1. CLOZARIL [Suspect]
     Dosage: 400 MG, UNK
  2. CLOZARIL [Suspect]
     Dosage: 425 MG, UNK
  3. CLOZARIL [Suspect]
     Dosage: 400 MG, UNK
     Dates: start: 19990624

REACTIONS (8)
  - PSYCHOTIC DISORDER [None]
  - UTERINE CANCER [None]
  - FAECAL INCONTINENCE [None]
  - ENDOMETRIAL HYPERPLASIA [None]
  - HAEMOGLOBIN DECREASED [None]
  - RED CELL DISTRIBUTION WIDTH INCREASED [None]
  - PLATELET COUNT INCREASED [None]
  - SMALL INTESTINAL OBSTRUCTION [None]
